FAERS Safety Report 18584557 (Version 4)
Quarter: 2024Q3

REPORT INFORMATION
  Report Type: Spontaneous
  Country: US (occurrence: US)
  Receive Date: 20201207
  Receipt Date: 20240829
  Transmission Date: 20241016
  Serious: Yes (Other)
  Sender: GILEAD
  Company Number: US-GILEAD-2020-0506981

PATIENT
  Age: 45 Year
  Sex: Male
  Weight: 59.864 kg

DRUGS (24)
  1. VIREAD [Suspect]
     Active Substance: TENOFOVIR DISOPROXIL FUMARATE
     Indication: HIV infection
     Dosage: UNK
     Route: 048
     Dates: start: 2004
  2. TRUVADA [Suspect]
     Active Substance: EMTRICITABINE\TENOFOVIR DISOPROXIL FUMARATE
     Indication: HIV infection
     Dosage: UNK
     Route: 048
     Dates: start: 2004, end: 2017
  3. TRUVADA [Suspect]
     Active Substance: EMTRICITABINE\TENOFOVIR DISOPROXIL FUMARATE
     Dosage: (200MG/300 MG)
     Route: 065
     Dates: end: 20190619
  4. VOSEVI [Concomitant]
     Active Substance: SOFOSBUVIR\VELPATASVIR\VOXILAPREVIR
  5. GENVOYA [Concomitant]
     Active Substance: COBICISTAT\ELVITEGRAVIR\EMTRICITABINE\TENOFOVIR ALAFENAMIDE FUMARATE
  6. HARVONI [Concomitant]
     Active Substance: LEDIPASVIR\SOFOSBUVIR
  7. ACETAMINOPHEN [Concomitant]
     Active Substance: ACETAMINOPHEN
     Dosage: TAKE ONE TAB BY MOUTH EVERY 8 HOURS AS NEEDED
     Route: 048
  8. ALPRAZOLAM [Concomitant]
     Active Substance: ALPRAZOLAM
     Indication: Somnolence
     Dosage: TAKE ONE TAB BY MOUTH ONE TIME DAILY AS NEEDED
     Route: 048
  9. BUPROPION [Concomitant]
     Active Substance: BUPROPION
     Dosage: 1 DOSAGE FORM, QD
  10. CHLORHEXIDINE GLUCONATE [Concomitant]
     Active Substance: CHLORHEXIDINE GLUCONATE
  11. CYCLOBENZAPRINE [Concomitant]
     Active Substance: CYCLOBENZAPRINE
  12. ENSURE HIGH PROTEIN [Concomitant]
  13. ENSURE [Concomitant]
     Active Substance: AMINO ACIDS\DEXTROSE\ELECTROLYTES NOS\SOYBEAN OIL\VITAMINS
  14. IBUPROFEN [Concomitant]
     Active Substance: IBUPROFEN
  15. TADALAFIL [Concomitant]
     Active Substance: TADALAFIL
  16. VITAMIN D2 [Concomitant]
     Active Substance: ERGOCALCIFEROL
  17. AMOXICILLIN [Concomitant]
     Active Substance: AMOXICILLIN
  18. CHANTIX [Concomitant]
     Active Substance: VARENICLINE TARTRATE
  19. HYDROCODONE [Concomitant]
     Active Substance: HYDROCODONE
  20. IMIQUIMOD [Concomitant]
     Active Substance: IMIQUIMOD
  21. NICOTINE [Concomitant]
     Active Substance: NICOTINE
  22. TIVICAY [Concomitant]
     Active Substance: DOLUTEGRAVIR SODIUM
  23. TRIAMCINOLONE ACETONIDE [Concomitant]
     Active Substance: TRIAMCINOLONE ACETONIDE
  24. VIAGRA [Concomitant]
     Active Substance: SILDENAFIL CITRATE

REACTIONS (7)
  - Renal injury [Unknown]
  - Multiple fractures [Unknown]
  - Osteonecrosis [Unknown]
  - Skeletal injury [Unknown]
  - Bone density decreased [Unknown]
  - Bone loss [Unknown]
  - Vitamin D deficiency [Unknown]

NARRATIVE: CASE EVENT DATE: 20151020
